FAERS Safety Report 18279077 (Version 1)
Quarter: 2020Q3

REPORT INFORMATION
  Report Type: Other
  Country: TW (occurrence: TW)
  Receive Date: 20200917
  Receipt Date: 20200917
  Transmission Date: 20201103
  Serious: Yes (Other)
  Sender: FDA-Public Use
  Company Number: TW-ROCHE-2678034

PATIENT
  Age: 63 Year
  Sex: Female

DRUGS (3)
  1. FOLFIRI [Concomitant]
     Active Substance: FLUOROURACIL\IRINOTECAN\LEUCOVORIN
     Indication: PRODUCT USED FOR UNKNOWN INDICATION
  2. ACTILYSE [Suspect]
     Active Substance: ALTEPLASE
     Indication: CEREBROVASCULAR ACCIDENT
     Dosage: 35MG, 0.7 MG/KG FREQUENCY: 1, FREQUENCY UNIT: 809 (1 IN ONCE)
     Route: 042
  3. CETUXIMAB. [Concomitant]
     Active Substance: CETUXIMAB
     Indication: PRODUCT USED FOR UNKNOWN INDICATION

REACTIONS (3)
  - Carotid arteriosclerosis [Recovering/Resolving]
  - Drug ineffective [Unknown]
  - Cerebral artery embolism [Recovering/Resolving]
